FAERS Safety Report 8493928-7 (Version None)
Quarter: 2012Q3

REPORT INFORMATION
  Report Type: 
  Country: None (occurrence: None)
  Receive Date: 20120709
  Receipt Date: 20120703
  Transmission Date: 20120928
  Serious: Yes (Hospitalization, Other)
  Sender: FDA-Public Use
  Company Number: GXKR2012DE001732

PATIENT
  Age: 44 Year
  Sex: Female
  Weight: 80 kg

DRUGS (6)
  1. VITAMIN D [Concomitant]
  2. SIMVASTATIN [Suspect]
     Dosage: 80 MG/DAY
     Route: 048
  3. ANTIBIOTICS [Concomitant]
     Indication: CYSTITIS
  4. LEVOTHYROXINE SODIUM [Suspect]
     Dosage: 100 UG, UNK
     Route: 048
  5. EMSELEX [Concomitant]
  6. KRYPTOSAN [Concomitant]

REACTIONS (5)
  - DIZZINESS [None]
  - THYROXINE INCREASED [None]
  - MUSCULAR WEAKNESS [None]
  - MULTIPLE SCLEROSIS RELAPSE [None]
  - MUSCLE SPASTICITY [None]
